FAERS Safety Report 4808625-6 (Version None)
Quarter: 2005Q4

REPORT INFORMATION
  Report Type: 
  Country: None (occurrence: None)
  Receive Date: 20051021
  Receipt Date: 20050208
  Transmission Date: 20060501
  Serious: Yes (Other)
  Sender: FDA-Public Use
  Company Number: DE_050215224

PATIENT
  Age: 21 Year
  Sex: Male

DRUGS (3)
  1. ZYPREXA [Suspect]
     Indication: SCHIZOAFFECTIVE DISORDER
     Dosage: 10 MG DAY
     Dates: start: 20040101, end: 20040101
  2. SEROQUEL [Concomitant]
  3. EDRONAX  (REBOXETINE) [Concomitant]

REACTIONS (11)
  - BLOOD CREATINE PHOSPHOKINASE INCREASED [None]
  - HAEMOGLOBIN INCREASED [None]
  - HYPERHIDROSIS [None]
  - MUSCULAR WEAKNESS [None]
  - MYALGIA [None]
  - MYOSITIS [None]
  - PALPITATIONS [None]
  - SOMATOFORM DISORDER [None]
  - TACHYCARDIA [None]
  - THERAPY NON-RESPONDER [None]
  - TREMOR [None]
